FAERS Safety Report 9839200 (Version 2)
Quarter: 2014Q2

REPORT INFORMATION
  Report Type: Spontaneous
  Country: US (occurrence: US)
  Receive Date: 20140123
  Receipt Date: 20140401
  Transmission Date: 20141212
  Serious: Yes (Hospitalization, Other)
  Sender: FDA-Public Use
  Company Number: US-GILEAD-2014-0092778

PATIENT
  Sex: Male

DRUGS (2)
  1. LETAIRIS [Suspect]
     Indication: PULMONARY HYPERTENSION
     Dosage: 10 MG, UNK
     Route: 048
     Dates: start: 20120118
  2. LETAIRIS [Suspect]
     Indication: COR PULMONALE

REACTIONS (4)
  - Dialysis [Unknown]
  - Fluid imbalance [Unknown]
  - Renal failure chronic [Unknown]
  - Cardiac failure congestive [Unknown]
